FAERS Safety Report 7470812-9 (Version None)
Quarter: 2011Q2

REPORT INFORMATION
  Report Type: 
  Country: None (occurrence: None)
  Receive Date: 20110510
  Receipt Date: 20110427
  Transmission Date: 20111010
  Serious: Yes (Life-Threatening, Hospitalization)
  Sender: FDA-Public Use
  Company Number: MX-JNJFOC-20101003745

PATIENT
  Age: 24 Year
  Sex: Male
  Weight: 62.7 kg

DRUGS (3)
  1. CIPROFLOXACIN [Concomitant]
     Indication: PHARYNGITIS
  2. NIMESULIDA [Concomitant]
     Indication: PHARYNGITIS
  3. REMICADE [Suspect]
     Indication: PSORIASIS
     Route: 042

REACTIONS (2)
  - NEPHROTIC SYNDROME [None]
  - GASTROINTESTINAL CANCER METASTATIC [None]
